FAERS Safety Report 11300281 (Version 1)
Quarter: 2015Q3

REPORT INFORMATION
  Report Type: Spontaneous
  Country: US (occurrence: US)
  Receive Date: 20150722
  Receipt Date: 20150722
  Transmission Date: 20151125
  Serious: No
  Sender: FDA-Public Use
  Company Number: US-ELI_LILLY_AND_COMPANY-US201303002009

PATIENT
  Age: 49 Year
  Sex: Female

DRUGS (2)
  1. HUMATROPE [Suspect]
     Active Substance: SOMATROPIN
     Indication: GROWTH HORMONE DEFICIENCY
     Dosage: 1 ML, EACH EVENING
     Dates: start: 20130215
  2. HUMATROPE [Suspect]
     Active Substance: SOMATROPIN

REACTIONS (6)
  - Insomnia [Unknown]
  - Injury associated with device [Unknown]
  - Oropharyngeal pain [Unknown]
  - Pain [Unknown]
  - Chest pain [Unknown]
  - Drug dose omission [Unknown]

NARRATIVE: CASE EVENT DATE: 20130215
